FAERS Safety Report 5002721-9 (Version None)
Quarter: 2006Q2

REPORT INFORMATION
  Report Type: 
  Country: None (occurrence: None)
  Receive Date: 20060516
  Receipt Date: 20060504
  Transmission Date: 20061013
  Serious: Yes (Death, Other)
  Sender: FDA-Public Use
  Company Number: US-JNJFOC-20060307774

PATIENT
  Sex: Male

DRUGS (16)
  1. REOPRO [Suspect]
  2. REOPRO [Suspect]
     Indication: MYOCARDIAL INFARCTION
     Dosage: 3.6 ML IN 50 ML DILUENT OF NORMAL SALINE AT RATE OF 4M/HR OVER 12 HOURS.
  3. PRASTURAL [Interacting]
     Indication: DRUG USE FOR UNKNOWN INDICATION
  4. ATORVASTATIN CALCIUM [Concomitant]
  5. ACETYLSALICYLIC ACID SRT [Concomitant]
  6. ATENOLOL [Concomitant]
  7. TAMSULOSIN HCL [Concomitant]
     Indication: BENIGN PROSTATIC HYPERPLASIA
  8. ENALAPRIL MALEATE [Concomitant]
  9. ENALAPRIL MALEATE [Concomitant]
     Indication: HYPERTENSION
  10. CLOPIDOGREL [Concomitant]
  11. CLOPIDOGREL [Concomitant]
  12. CLOPIDOGREL [Concomitant]
     Indication: ACUTE CORONARY SYNDROME
  13. FUROSEMIDE [Concomitant]
     Route: 042
  14. DOPAMINE [Concomitant]
  15. DOBUTAMINE HCL [Concomitant]
  16. LOW MOLECULAR WEIGHT HEPARIN [Concomitant]

REACTIONS (3)
  - AORTIC STENOSIS [None]
  - CORONARY ARTERY DISEASE [None]
  - DRUG INTERACTION [None]
